FAERS Safety Report 8365544-9 (Version None)
Quarter: 2012Q2

REPORT INFORMATION
  Report Type: 
  Country: None (occurrence: None)
  Receive Date: 20120516
  Receipt Date: 20120515
  Transmission Date: 20120825
  Serious: Yes (Other)
  Sender: FDA-Public Use
  Company Number: US-PFIZER INC-2012118046

PATIENT
  Sex: Female
  Weight: 70.295 kg

DRUGS (6)
  1. EFFEXOR XR [Suspect]
     Indication: BIPOLAR I DISORDER
     Dosage: 37.5 MG, 1X/DAY
  2. EFFEXOR XR [Suspect]
     Dosage: 37.5 MG, 3X/DAY
  3. TOPAMAX [Concomitant]
     Indication: BIPOLAR I DISORDER
     Dosage: 50 MG, 1X/DAY
     Route: 048
  4. EFFEXOR XR [Suspect]
     Dosage: 150 MG, 1X/DAY
     Dates: start: 20120507
  5. ATIVAN [Concomitant]
     Indication: BIPOLAR I DISORDER
     Dosage: 1 MG, 3X/DAY
  6. REMERON [Concomitant]
     Indication: BIPOLAR I DISORDER
     Dosage: 30 MG, 1X/DAY

REACTIONS (4)
  - CORONARY ARTERY OCCLUSION [None]
  - AGITATION [None]
  - CHEST PAIN [None]
  - NERVOUSNESS [None]
